FAERS Safety Report 6966035-X (Version None)
Quarter: 2010Q3

REPORT INFORMATION
  Report Type: 
  Country: None (occurrence: None)
  Receive Date: 20100903
  Receipt Date: 20100505
  Transmission Date: 20110219
  Serious: No
  Sender: FDA-Public Use
  Company Number: A0858789A

PATIENT
  Age: 30 Year
  Sex: Female

DRUGS (5)
  1. LAMICTAL [Suspect]
     Indication: BIPOLAR DISORDER
     Route: 065
     Dates: start: 20091201
  2. WELLBUTRIN [Suspect]
     Indication: DEPRESSION
     Route: 065
     Dates: start: 20091201
  3. LEXAPRO [Suspect]
     Indication: DEPRESSION
     Dosage: 20MG PER DAY
     Route: 048
     Dates: start: 20090401
  4. AMBIEN [Suspect]
     Indication: INSOMNIA
     Route: 065
     Dates: start: 20091201
  5. KLONOPIN [Suspect]
     Indication: ANXIETY
     Route: 065
     Dates: start: 20091201

REACTIONS (2)
  - INCREASED APPETITE [None]
  - WEIGHT INCREASED [None]
